FAERS Safety Report 12964762 (Version 2)
Quarter: 2016Q4

REPORT INFORMATION
  Report Type: Spontaneous
  Country: IT (occurrence: IT)
  Receive Date: 20161122
  Receipt Date: 20161129
  Transmission Date: 20170207
  Serious: Yes (Life-Threatening)
  Sender: FDA-Public Use
  Company Number: IT-PFIZER INC-2016541764

PATIENT
  Age: 33 Year
  Sex: Male
  Weight: 55 kg

DRUGS (2)
  1. EPSOCLAR [Suspect]
     Active Substance: HEPARIN SODIUM
     Indication: THROMBOSIS PROPHYLAXIS
     Dosage: 26000 IU, TOTAL
     Route: 042
     Dates: start: 20161111
  2. EPSOCLAR [Suspect]
     Active Substance: HEPARIN SODIUM
     Dosage: 26000 IU, TOTAL
     Route: 042
     Dates: start: 20161111

REACTIONS (1)
  - Drug ineffective [Unknown]

NARRATIVE: CASE EVENT DATE: 20161111
